FAERS Safety Report 24029053 (Version 1)
Quarter: 2024Q2

REPORT INFORMATION
  Report Type: Spontaneous
  Country: PL (occurrence: PL)
  Receive Date: 20240628
  Receipt Date: 20240628
  Transmission Date: 20240716
  Serious: Yes (Other)
  Sender: FDA-Public Use
  Company Number: PL-JNJFOC-20240656020

PATIENT
  Sex: Female

DRUGS (5)
  1. TECVAYLI [Suspect]
     Active Substance: TECLISTAMAB-CQYV
     Indication: Plasma cell myeloma
     Route: 058
     Dates: start: 20220913
  2. TECVAYLI [Suspect]
     Active Substance: TECLISTAMAB-CQYV
     Route: 058
  3. TECVAYLI [Suspect]
     Active Substance: TECLISTAMAB-CQYV
     Route: 058
  4. DARZALEX [Suspect]
     Active Substance: DARATUMUMAB
     Indication: Plasma cell myeloma
     Route: 065
     Dates: start: 20220913
  5. MELPHALAN [Concomitant]
     Active Substance: MELPHALAN

REACTIONS (6)
  - Cytokine release syndrome [Unknown]
  - Thrombocytopenia [Unknown]
  - Neutropenia [Unknown]
  - Clostridium difficile infection [Unknown]
  - Anaemia [Unknown]
  - Intentional product use issue [Unknown]
